FAERS Safety Report 8170615-6 (Version None)
Quarter: 2012Q1

REPORT INFORMATION
  Report Type: 
  Country: None (occurrence: None)
  Receive Date: 20120104
  Receipt Date: 20111006
  Transmission Date: 20120608
  Serious: No
  Sender: FDA-Public Use
  Company Number: 2011HGS-002614

PATIENT
  Age: 36 Year
  Sex: Female
  Weight: 49.8957 kg

DRUGS (18)
  1. PREDNISONE TAB [Concomitant]
  2. BENLYSTA [Suspect]
     Indication: SYSTEMIC LUPUS ERYTHEMATOSUS
     Dosage: 1 IN 28 D, INTRAVENOUS DRIP
     Route: 041
     Dates: start: 20110425
  3. CARAFATE [Concomitant]
  4. CYTOTEC [Concomitant]
  5. COLACE (DOCUSATE SODIUM) [Concomitant]
  6. ASPIRIN [Concomitant]
  7. ERYTHROMYCIN [Concomitant]
  8. PROTONIX [Concomitant]
  9. MULTIVITAMIN (MULTIVITAMINS) (ERGOCALCIFEROL, ASCORBIC ACID, FOLIC ACI [Concomitant]
  10. PROBIOTIC (PROBIOTIC) [Concomitant]
  11. METHOTREXATE (METHOTREXTE) [Concomitant]
  12. COREG [Concomitant]
  13. ALBUTEROL [Concomitant]
  14. FOLIC ACID [Concomitant]
  15. MIRALAX [Concomitant]
  16. PLAQUENIL [Concomitant]
  17. DILAUDID [Concomitant]
  18. XANAX [Concomitant]

REACTIONS (6)
  - DYSPHONIA [None]
  - DYSPHAGIA [None]
  - WEIGHT DECREASED [None]
  - DRUG INEFFECTIVE [None]
  - UNEVALUABLE EVENT [None]
  - DYSPNOEA [None]
